FAERS Safety Report 7293722-9 (Version None)
Quarter: 2011Q1

REPORT INFORMATION
  Report Type: 
  Country: None (occurrence: None)
  Receive Date: 20110215
  Receipt Date: 20110204
  Transmission Date: 20110831
  Serious: Yes (Other)
  Sender: FDA-Public Use
  Company Number: US-CUBIST-2011S1000005

PATIENT
  Age: 29 Year
  Sex: Female
  Weight: 193.5 kg

DRUGS (11)
  1. ANTIBIOTICS [Concomitant]
  2. CIPROFLOXACIN [Concomitant]
  3. AZITHROMYCIN [Concomitant]
  4. PIPERACILLIN AND TAZOBACTAM [Concomitant]
  5. CUBICIN [Suspect]
     Route: 042
  6. VANCOMYCIN [Concomitant]
  7. LINEZOLID [Concomitant]
  8. CUBICIN [Suspect]
     Indication: BACTERAEMIA
     Route: 042
  9. CEFAZOLIN [Concomitant]
  10. IMIPENEM [Concomitant]
  11. AUGMENTIN '125' [Concomitant]

REACTIONS (2)
  - RENAL TUBULAR NECROSIS [None]
  - URINARY TRACT INFECTION BACTERIAL [None]
